FAERS Safety Report 20670141 (Version 1)
Quarter: 2022Q2

REPORT INFORMATION
  Report Type: Spontaneous
  Country: US (occurrence: None)
  Receive Date: 20220401
  Receipt Date: 20220401
  Transmission Date: 20220721
  Serious: Yes (Hospitalization, Other)
  Sender: FDA-Public Use
  Company Number: None

PATIENT
  Age: 61 Year
  Sex: Female
  Weight: 81.19 kg

DRUGS (2)
  1. DESVENLAFAXINE [Suspect]
     Active Substance: DESVENLAFAXINE
     Indication: Major depression
     Dosage: FREQUENCY : DAILY;?BRAND NAME ONLY
     Route: 048
     Dates: start: 20191014
  2. DESVENLAFAXINE [Suspect]
     Active Substance: DESVENLAFAXINE
     Indication: Major depression
     Dosage: FREQUENCY : DAILY;?BRAND NAME ONLY
     Route: 048
     Dates: start: 20200830

REACTIONS (4)
  - Nausea [None]
  - Confusional state [None]
  - Crying [None]
  - Head discomfort [None]

NARRATIVE: CASE EVENT DATE: 20191113
